FAERS Safety Report 6816217-2 (Version None)
Quarter: 2010Q3

REPORT INFORMATION
  Report Type: 
  Country: None (occurrence: None)
  Receive Date: 20100705
  Receipt Date: 20081204
  Transmission Date: 20110219
  Serious: No
  Sender: FDA-Public Use
  Company Number: US-PFIZER INC-2008152873

PATIENT

DRUGS (1)
  1. ZYVOX [Suspect]

REACTIONS (1)
  - URTICARIA [None]
